FAERS Safety Report 13452810 (Version 2)
Quarter: 2017Q2

REPORT INFORMATION
  Report Type: Spontaneous
  Country: JP (occurrence: JP)
  Receive Date: 20170418
  Receipt Date: 20170428
  Transmission Date: 20170830
  Serious: No
  Sender: FDA-Public Use
  Company Number: JP-GLAXOSMITHKLINE-JP2017JPN047296

PATIENT
  Age: 88 Year
  Sex: Male

DRUGS (4)
  1. VENTOLINE [Suspect]
     Active Substance: ALBUTEROL
     Dosage: 2 ML, 1D
     Route: 055
     Dates: start: 20170209
  2. TULOBUTEROL [Concomitant]
     Active Substance: TULOBUTEROL
     Dosage: 1.4 UNK, UNK
  3. BROMHEXINE HYDROCHLORIDE [Concomitant]
     Active Substance: BROMHEXINE HYDROCHLORIDE
     Dosage: UNK
  4. FUROSEMIDE. [Concomitant]
     Active Substance: FUROSEMIDE
     Dosage: UNK

REACTIONS (1)
  - Tachycardia paroxysmal [Recovered/Resolved]

NARRATIVE: CASE EVENT DATE: 20170404
